FAERS Safety Report 9571460 (Version 1)
Quarter: 2013Q4

REPORT INFORMATION
  Report Type: Spontaneous
  Country: PT (occurrence: PT)
  Receive Date: 20131001
  Receipt Date: 20131001
  Transmission Date: 20140711
  Serious: Yes (Life-Threatening, Hospitalization)
  Sender: FDA-Public Use
  Company Number: PT-009507513-1309PRT011677

PATIENT
  Age: 71 Year
  Sex: Female
  Weight: 60 kg

DRUGS (5)
  1. ESMERON [Suspect]
     Indication: MUSCLE RELAXANT THERAPY
     Dosage: 40 MG, QD
     Route: 042
     Dates: start: 20130830, end: 20130830
  2. ISOSULFAN BLUE [Suspect]
     Indication: MUSCLE RELAXANT THERAPY
     Dates: start: 20130830, end: 20130830
  3. DYNASTAT [Concomitant]
     Indication: ANTIINFLAMMATORY THERAPY
     Dosage: 40 MG, QD
     Route: 042
     Dates: start: 20130830, end: 20130830
  4. DIPRIVAN [Concomitant]
     Dosage: 120 MG, QD
     Route: 042
     Dates: start: 20130830, end: 20130830
  5. FENTANYL [Concomitant]
     Dosage: 0.15 MG, QD
     Route: 042
     Dates: start: 20130830, end: 20130830

REACTIONS (5)
  - Cardiovascular disorder [Recovered/Resolved]
  - Anaphylactic shock [Recovered/Resolved]
  - Generalised erythema [Recovered/Resolved]
  - Respiratory disorder [Recovered/Resolved]
  - Rash [Recovered/Resolved]
